FAERS Safety Report 20215855 (Version 2)
Quarter: 2022Q1

REPORT INFORMATION
  Report Type: Spontaneous
  Country: US (occurrence: US)
  Receive Date: 20211222
  Receipt Date: 20220121
  Transmission Date: 20220423
  Serious: Yes (Hospitalization, Other)
  Sender: FDA-Public Use
  Company Number: US-TEVA-2021-US-1989834

PATIENT
  Age: 25 Year
  Sex: Male

DRUGS (7)
  1. ARIPIPRAZOLE [Suspect]
     Active Substance: ARIPIPRAZOLE
     Indication: Generalised anxiety disorder
     Route: 065
  2. BUSPIRONE [Suspect]
     Active Substance: BUSPIRONE HYDROCHLORIDE
     Indication: Generalised anxiety disorder
     Route: 065
  3. CLONAZEPAM [Suspect]
     Active Substance: CLONAZEPAM
     Indication: Generalised anxiety disorder
     Dosage: .25 MILLIGRAM DAILY;
     Route: 065
  4. OLANZAPINE [Suspect]
     Active Substance: OLANZAPINE
     Indication: Generalised anxiety disorder
     Dosage: 5 MILLIGRAM DAILY;  NIGHTLY
     Route: 065
  5. VALPROIC ACID [Suspect]
     Active Substance: VALPROIC ACID
     Indication: Intermittent explosive disorder
     Dosage: 500 MILLIGRAM DAILY;
     Route: 065
     Dates: end: 202101
  6. SERTRALINE [Suspect]
     Active Substance: SERTRALINE HYDROCHLORIDE
     Indication: Generalised anxiety disorder
     Route: 065
     Dates: start: 202003
  7. RISPERIDONE [Concomitant]
     Active Substance: RISPERIDONE
     Indication: Intermittent explosive disorder
     Dosage: 1 MILLIGRAM DAILY;  NIGHTLY
     Route: 065

REACTIONS (5)
  - Disinhibition [Unknown]
  - Lethargy [Unknown]
  - Tremor [Unknown]
  - Nausea [Unknown]
  - Parotid gland enlargement [Recovering/Resolving]
